FAERS Safety Report 4491575-5 (Version None)
Quarter: 2004Q4

REPORT INFORMATION
  Report Type: 
  Country: None (occurrence: None)
  Receive Date: 20041101
  Receipt Date: 20041018
  Transmission Date: 20050328
  Serious: Yes (Other)
  Sender: FDA-Public Use
  Company Number: 2004079329

PATIENT
  Age: 75 Year
  Sex: Male

DRUGS (5)
  1. HYDROXYZINE HCL [Suspect]
     Indication: ALLERGY TO ARTHROPOD BITE
     Dates: start: 20040801, end: 20040801
  2. ALLOPURINOL [Suspect]
     Indication: ILL-DEFINED DISORDER
  3. SIMVASTATIN [Suspect]
     Indication: ILL-DEFINED DISORDER
  4. ACEBUTOLOL [Suspect]
     Indication: ILL-DEFINED DISORDER
  5. ASPIRIN [Suspect]
     Indication: ILL-DEFINED DISORDER

REACTIONS (7)
  - CARDIOVASCULAR DISORDER [None]
  - CIRCULATORY COLLAPSE [None]
  - CONFUSIONAL STATE [None]
  - DRUG INTERACTION [None]
  - DYSPNOEA [None]
  - FATIGUE [None]
  - HYPOTENSION [None]
